FAERS Safety Report 16042186 (Version 1)
Quarter: 2019Q1

REPORT INFORMATION
  Report Type: Spontaneous
  Country: US (occurrence: US)
  Receive Date: 20190306
  Receipt Date: 20190306
  Transmission Date: 20190418
  Serious: No
  Sender: FDA-Public Use
  Company Number: US-AKORN PHARMACEUTICALS-2018AKN00537

PATIENT
  Age: 16 Year
  Sex: Male

DRUGS (2)
  1. SULFA DRUG [Suspect]
     Active Substance: UNSPECIFIED INGREDIENT
     Indication: INFECTION
     Dosage: UNK
  2. MYORISAN [Suspect]
     Active Substance: ISOTRETINOIN
     Indication: ACNE
     Dosage: 40 MG, 2X/DAY
     Route: 048
     Dates: start: 201712, end: 201804

REACTIONS (2)
  - Hypersensitivity [Recovered/Resolved]
  - Infection [Recovered/Resolved]

NARRATIVE: CASE EVENT DATE: 201803
